FAERS Safety Report 8450932-2 (Version None)
Quarter: 2012Q2

REPORT INFORMATION
  Report Type: 
  Country: None (occurrence: None)
  Receive Date: 20120604
  Receipt Date: 20120521
  Transmission Date: 20120825
  Serious: No
  Sender: FDA-Public Use
  Company Number: US-145311

PATIENT
  Sex: Female

DRUGS (2)
  1. WINRHO SDF [Suspect]
     Indication: AUTOIMMUNE THROMBOCYTOPENIA
     Dosage: ()
     Dates: start: 20120518, end: 20120518
  2. ALINIA [Concomitant]

REACTIONS (3)
  - CHROMATURIA [None]
  - CONDITION AGGRAVATED [None]
  - BLOOD URINE PRESENT [None]
